FAERS Safety Report 9188783 (Version 1)
Quarter: 2013Q1

REPORT INFORMATION
  Report Type: Spontaneous
  Country: US (occurrence: US)
  Receive Date: 20130326
  Receipt Date: 20130326
  Transmission Date: 20140127
  Serious: Yes (Other)
  Sender: FDA-Public Use
  Company Number: US-ROCHE-552209

PATIENT
  Age: 19 Year
  Sex: Male
  Weight: 70.3 kg

DRUGS (2)
  1. ACCUTANE [Suspect]
     Indication: ACNE
     Route: 065
     Dates: start: 199909, end: 200001
  2. ACCUTANE [Suspect]
     Route: 065
     Dates: start: 200101, end: 200104

REACTIONS (6)
  - Colitis ulcerative [Recovering/Resolving]
  - Inflammatory bowel disease [Recovering/Resolving]
  - Large intestine polyp [Unknown]
  - Stress [Unknown]
  - Irritable bowel syndrome [Unknown]
  - Oral herpes [Unknown]
